FAERS Safety Report 4691385-X (Version None)
Quarter: 2005Q2

REPORT INFORMATION
  Report Type: 
  Country: None (occurrence: None)
  Receive Date: 20050614
  Receipt Date: 20050530
  Transmission Date: 20051028
  Serious: Yes (Hospitalization)
  Sender: FDA-Public Use
  Company Number: 11299

PATIENT
  Age: 62 Year
  Sex: Female

DRUGS (9)
  1. FLUOROURACIL [Suspect]
     Indication: COLORECTAL CANCER METASTATIC
     Dosage: 3712 MG/KG PER_CYCLE IV
     Route: 042
     Dates: start: 20050308
  2. LEUCOVORIN [Suspect]
     Indication: COLORECTAL CANCER METASTATIC
     Dosage: 640 MG/KG PER_CYCLE IV
     Route: 042
     Dates: start: 20050308
  3. LOMOTIL [Concomitant]
  4. OXYCONTIN [Concomitant]
  5. PREMARIN [Concomitant]
  6. CETUXIMAB [Suspect]
     Indication: COLORECTAL CANCER METASTATIC
     Dosage: 400 MG/KG WEEKLY IV
     Route: 042
     Dates: start: 20050308
  7. OXALIPLATIN [Suspect]
     Indication: COLORECTAL CANCER METASTATIC
     Dosage: 104 MG/KG PER_CYCLE IV
     Route: 042
     Dates: start: 20050308
  8. LEVOXYL [Concomitant]
  9. LIPITOR [Concomitant]

REACTIONS (4)
  - DEHYDRATION [None]
  - DIARRHOEA [None]
  - NAUSEA [None]
  - VOMITING [None]
